FAERS Safety Report 4274953-9 (Version None)
Quarter: 2004Q1

REPORT INFORMATION
  Report Type: 
  Country: None (occurrence: None)
  Receive Date: 20040120
  Receipt Date: 20040113
  Transmission Date: 20041129
  Serious: Yes (Death)
  Sender: FDA-Public Use
  Company Number: 04-01-0057

PATIENT
  Age: 75 Year
  Sex: Female

DRUGS (3)
  1. CLOZAPINE [Suspect]
     Indication: DELIRIUM
     Dosage: 50-150 MG QD ORAL
     Route: 048
     Dates: start: 20021001, end: 20031201
  2. CLOZAPINE [Suspect]
     Indication: DEMENTIA
     Dosage: 50-150 MG QD ORAL
     Route: 048
     Dates: start: 20021001, end: 20031201
  3. CLOZAPINE [Suspect]
     Indication: DEPRESSION
     Dosage: 50-150 MG QD ORAL
     Route: 048
     Dates: start: 20021001, end: 20031201

REACTIONS (1)
  - MYOCARDIAL INFARCTION [None]
